FAERS Safety Report 25503978 (Version 2)
Quarter: 2025Q3

REPORT INFORMATION
  Report Type: Spontaneous
  Country: CN (occurrence: CN)
  Receive Date: 20250702
  Receipt Date: 20250714
  Transmission Date: 20251020
  Serious: Yes (Other)
  Sender: ARGENX BVBA
  Company Number: CN-ARGENX-2025-ARGX-CN008570

PATIENT

DRUGS (1)
  1. VYVGART [Suspect]
     Active Substance: EFGARTIGIMOD ALFA-FCAB
     Indication: Product used for unknown indication
     Route: 041
     Dates: start: 202410

REACTIONS (5)
  - Hallucination [Unknown]
  - Mental disorder [Unknown]
  - Mental disorder [Unknown]
  - Off label use [Unknown]
  - Therapeutic product effect decreased [Unknown]

NARRATIVE: CASE EVENT DATE: 20241001
